FAERS Safety Report 4731818-3 (Version None)
Quarter: 2005Q3

REPORT INFORMATION
  Report Type: 
  Country: None (occurrence: None)
  Receive Date: 20050802
  Receipt Date: 20050802
  Transmission Date: 20060218
  Serious: Yes (Life-Threatening, Hospitalization)
  Sender: FDA-Public Use
  Company Number: None

PATIENT
  Age: 57 Year
  Sex: Male
  Weight: 77 kg

DRUGS (16)
  1. EPTIFIBATIDE INJECTION [Suspect]
     Indication: MYOCARDIAL INFARCTION
     Dosage: INTRAVENOU
     Route: 042
     Dates: start: 20041230, end: 20041230
  2. LOVENOX [Concomitant]
  3. ASPIRIN [Concomitant]
  4. PLAVIX [Concomitant]
  5. CAPTOPRIL [Concomitant]
  6. NTG INFUSION [Concomitant]
  7. ISOSORBIDE DINITRATE [Concomitant]
  8. SIMVASTATIN [Concomitant]
  9. DILANTIN [Concomitant]
  10. ZANTAC [Concomitant]
  11. RISPERIDONE [Concomitant]
  12. SERTRALINE HCL [Concomitant]
  13. VIT. D [Concomitant]
  14. HYDROCHLOROTHIAZIDE [Concomitant]
  15. CALCIUM GLUCONATE [Concomitant]
  16. MIRTAZAPINE [Concomitant]

REACTIONS (1)
  - PLATELET COUNT DECREASED [None]
